FAERS Safety Report 16393622 (Version 6)
Quarter: 2022Q1

REPORT INFORMATION
  Report Type: Spontaneous
  Country: US (occurrence: US)
  Receive Date: 20190605
  Receipt Date: 20220113
  Transmission Date: 20220423
  Serious: No
  Sender: FDA-Public Use
  Company Number: US-PFIZER INC-2019232579

PATIENT
  Age: 80 Year
  Sex: Male
  Weight: 76.2 kg

DRUGS (11)
  1. LYRICA [Suspect]
     Active Substance: PREGABALIN
     Indication: Neuropathy peripheral
     Dosage: 75 MG (ONE IN THE MORNING, TWO AT NIGHT)
     Route: 048
     Dates: start: 2010
  2. LYRICA [Suspect]
     Active Substance: PREGABALIN
     Indication: Myelopathy
     Dosage: UNK
  3. LYRICA [Suspect]
     Active Substance: PREGABALIN
     Dosage: 75 MG, 3X/DAY
     Route: 048
  4. WARFARIN [Concomitant]
     Active Substance: WARFARIN
     Indication: Pulmonary embolism
     Dosage: UNK, 1X/DAY [7 AND A HALF MG A DAY]
     Route: 048
     Dates: start: 1992
  5. WARFARIN [Concomitant]
     Active Substance: WARFARIN
     Dosage: UNK
     Dates: start: 1994
  6. CELEBREX [Concomitant]
     Active Substance: CELECOXIB
     Dosage: 200 MG, 1X/DAY
     Dates: start: 1999
  7. OMEPRAZOLE [Concomitant]
     Active Substance: OMEPRAZOLE
     Dosage: 20 MG, 2X/DAY
     Dates: start: 2000
  8. TERAZOSIN [Concomitant]
     Active Substance: TERAZOSIN HYDROCHLORIDE
     Dosage: 10 MG, 1X/DAY
     Dates: start: 2006
  9. LATANOPROST [Concomitant]
     Active Substance: LATANOPROST
     Dosage: 2 GTT, [ONE DROP IN EACH EYE]
     Dates: start: 1999
  10. FLUTICASONE PROPIONATE\SALMETEROL XINAFOATE [Concomitant]
     Active Substance: FLUTICASONE PROPIONATE\SALMETEROL XINAFOATE
     Dosage: UNK, 1X/DAY (2 SPRAYS ONCE A DAY )
     Dates: start: 1998
  11. CIALIS [Concomitant]
     Active Substance: TADALAFIL
     Indication: Prostate induration
     Dosage: 5 MG, 1X/DAY
     Dates: start: 2016

REACTIONS (1)
  - Restless legs syndrome [Recovered/Resolved]

NARRATIVE: CASE EVENT DATE: 20190501
